FAERS Safety Report 16507762 (Version 1)
Quarter: 2019Q2

REPORT INFORMATION
  Report Type: Spontaneous
  Country: US (occurrence: US)
  Receive Date: 20190521
  Receipt Date: 20190521
  Transmission Date: 20190711
  Serious: Yes (Death)
  Sender: FDA-Public Use
  Company Number: None

PATIENT
  Age: 55 Year
  Sex: Female

DRUGS (2)
  1. AFINITOR [Suspect]
     Active Substance: EVEROLIMUS
     Route: 048
     Dates: start: 20190220, end: 201905
  2. LETROZOLE 2.5MG [Suspect]
     Active Substance: LETROZOLE
     Route: 048
     Dates: start: 20190220, end: 201905

REACTIONS (1)
  - Death [None]
